FAERS Safety Report 7924382-9 (Version None)
Quarter: 2011Q4

REPORT INFORMATION
  Report Type: 
  Country: None (occurrence: None)
  Receive Date: 20111117
  Receipt Date: 20051215
  Transmission Date: 20120403
  Serious: Yes (Other)
  Sender: FDA-Public Use
  Company Number: PHHY2005MX04197

PATIENT
  Age: 39 Year
  Sex: Male

DRUGS (1)
  1. ZELMAC [Suspect]
     Indication: IRRITABLE BOWEL SYNDROME
     Dosage: 6 MG, BID
     Route: 048
     Dates: start: 20051010

REACTIONS (3)
  - SPINAL COLUMN INJURY [None]
  - CENTRAL NERVOUS SYSTEM LESION [None]
  - ROAD TRAFFIC ACCIDENT [None]
